FAERS Safety Report 21526092 (Version 3)
Quarter: 2024Q1

REPORT INFORMATION
  Report Type: Report from Study
  Country: MX (occurrence: MX)
  Receive Date: 20221031
  Receipt Date: 20240319
  Transmission Date: 20240409
  Serious: Yes (Hospitalization)
  Sender: FDA-Public Use
  Company Number: MX-NOVARTISPH-NVSC2022MX209363

PATIENT
  Age: 53 Year
  Sex: Male
  Weight: 64 kg

DRUGS (1)
  1. GILENYA [Suspect]
     Active Substance: FINGOLIMOD HYDROCHLORIDE
     Indication: Multiple sclerosis
     Dosage: 0.5 MG, QD
     Route: 048
     Dates: start: 20220329

REACTIONS (8)
  - Renal neoplasm [Unknown]
  - Multiple sclerosis relapse [Not Recovered/Not Resolved]
  - Depressed mood [Unknown]
  - Urinary tract disorder [Unknown]
  - Bladder disorder [Unknown]
  - Asthenia [Unknown]
  - Trigeminal neuralgia [Unknown]
  - Psoriasis [Unknown]

NARRATIVE: CASE EVENT DATE: 20220701
